FAERS Safety Report 8443414-5 (Version None)
Quarter: 2012Q2

REPORT INFORMATION
  Report Type: 
  Country: None (occurrence: None)
  Receive Date: 20120612
  Receipt Date: 20120612
  Transmission Date: 20120825
  Serious: Yes (Hospitalization)
  Sender: FDA-Public Use
  Company Number: None

PATIENT
  Age: 42 Year
  Sex: Female
  Weight: 95.2554 kg

DRUGS (4)
  1. SIBUTRAMINE HYDROCHLORIDE MONOHYDRATE [Suspect]
     Dates: start: 20090514
  2. SIBUTRAMINE HYDROCHLORIDE MONOHYDRATE [Suspect]
     Dates: start: 20090517
  3. SIBUTRAMINE HYDROCHLORIDE MONOHYDRATE [Suspect]
     Dates: start: 20090518
  4. SIBUTRAMINE HYDROCHLORIDE MONOHYDRATE [Suspect]
     Indication: WEIGHT CONTROL
     Dosage: ONCE PER DAY ORAL
     Route: 048
     Dates: start: 20090512, end: 20090513

REACTIONS (11)
  - DEHYDRATION [None]
  - DECREASED APPETITE [None]
  - BLOOD GLUCOSE DECREASED [None]
  - OBSESSIVE THOUGHTS [None]
  - HEADACHE [None]
  - NASOPHARYNGITIS [None]
  - DIZZINESS [None]
  - INSOMNIA [None]
  - CHEST DISCOMFORT [None]
  - ANXIETY [None]
  - PALPITATIONS [None]
